FAERS Safety Report 4319557-4 (Version None)
Quarter: 2004Q1

REPORT INFORMATION
  Report Type: 
  Country: None (occurrence: None)
  Receive Date: 20040316
  Receipt Date: 20040305
  Transmission Date: 20041129
  Serious: Yes (Other)
  Sender: FDA-Public Use
  Company Number: USA040360463

PATIENT
  Age: 49 Year
  Sex: Female

DRUGS (1)
  1. PROZAC [Suspect]
     Indication: DEPRESSION
     Dosage: 30 MG/1 DAY
     Dates: start: 19910101

REACTIONS (4)
  - BENIGN OVARIAN TUMOUR [None]
  - INTERVERTEBRAL DISC PROTRUSION [None]
  - LIBIDO DECREASED [None]
  - POST PROCEDURAL PAIN [None]
